FAERS Safety Report 5272517-1 (Version None)
Quarter: 2007Q1

REPORT INFORMATION
  Report Type: 
  Country: None (occurrence: None)
  Receive Date: 20070322
  Receipt Date: 20060824
  Transmission Date: 20070707
  Serious: No
  Sender: FDA-Public Use
  Company Number: US-BRISTOL-MYERS SQUIBB COMPANY-13488481

PATIENT
  Sex: Female

DRUGS (1)
  1. KENALOG-10 [Suspect]
     Indication: PLASTIC SURGERY

REACTIONS (1)
  - DRUG INEFFECTIVE [None]
